FAERS Safety Report 9536340 (Version 1)
Quarter: 2013Q2

REPORT INFORMATION
  Report Type: Spontaneous
  Country: US (occurrence: None)
  Receive Date: 20130507
  Receipt Date: 20130507
  Transmission Date: 20140414
  Serious: Yes (Disabling)
  Sender: FDA-Public Use
  Company Number: PHEH2013US001084

PATIENT
  Age: 78 Year
  Sex: Female
  Weight: 63.5 kg

DRUGS (14)
  1. AFINITOR (RAD) TABLET, 10MG [Suspect]
     Indication: BREAST CANCER METASTATIC
     Route: 048
     Dates: start: 20121024, end: 20121128
  2. FOSAMAX (ALENDRONATE SODIIUM) [Concomitant]
  3. AROMASIN (EXEMESTANE) [Concomitant]
  4. LOVASTATIN (LOVASTATIN) [Concomitant]
  5. LISINOPRIL (LISINOPRIL) [Concomitant]
  6. METFORMIN (METFORMIN) [Concomitant]
  7. LEVOTHYROXIN (LEVOTHYROXINE SODIUM) [Concomitant]
  8. ASA (ACETYLSALICYLIC ACID) [Concomitant]
  9. CALCIUIM + VIT D (CALCIUM CARBONATE, VITAMIN D NOS) [Concomitant]
  10. OMEGA 3 (FISH OIL) [Concomitant]
  11. IRON (IRON) [Concomitant]
  12. MULTIVIT (VITAMINS NOS) [Concomitant]
  13. CALTRATE (CALCIUM CARBONATE) [Concomitant]
  14. OMEPRAZOLE (OMEPRAZOLE) [Concomitant]

REACTIONS (4)
  - Pleural effusion [None]
  - Joint swelling [None]
  - Oedema peripheral [None]
  - Cough [None]
